FAERS Safety Report 5525759-1 (Version None)
Quarter: 2007Q4

REPORT INFORMATION
  Report Type: 
  Country: None (occurrence: None)
  Receive Date: 20071126
  Receipt Date: 20071114
  Transmission Date: 20080405
  Serious: Yes (Hospitalization)
  Sender: FDA-Public Use
  Company Number: FR-ROCHE-532069

PATIENT
  Age: 66 Year
  Sex: Female

DRUGS (10)
  1. RIVOTRIL [Suspect]
     Indication: DRUG USE FOR UNKNOWN INDICATION
     Dosage: FORM: VIAL
     Route: 065
     Dates: start: 20070518, end: 20070518
  2. RIVOTRIL [Suspect]
     Dosage: PATIENT RECEIVED THREE DROPS ONE DAILY FOR THREE YEARS.
     Route: 048
     Dates: end: 20070518
  3. INDAPAMIDE [Suspect]
     Indication: DRUG USE FOR UNKNOWN INDICATION
     Dosage: ONE DOSE FORM IN THE MORNING
     Route: 048
     Dates: start: 20040101, end: 20070518
  4. TEGRETOL [Suspect]
     Indication: DRUG USE FOR UNKNOWN INDICATION
     Dosage: ONE AND A HALF DOSE FORM AT NOON AND ONE AND A HALF DOSE FORM IN THE EVENING.
     Route: 048
     Dates: start: 19920101, end: 20070518
  5. SOTALOL HCL [Concomitant]
     Dosage: ONE DOSE FORM IN THE MORNING AND ONE DOSE FORM IN THE EVENING.
  6. SOTALOL HCL [Concomitant]
     Dosage: HALF DOSE FORM IN THE MORNING AND HALF DOSE FORM IN THE EVENING.
  7. NICARDIPINE HCL [Concomitant]
     Dosage: ONE DOSE FORM IN THE MORNING AND ONE DOSE FORM IN THE EVENING.
  8. LOXEN LP [Concomitant]
     Dosage: ONE DOSE FORM AT NOON FOR EIGHT DAYS
  9. XALATAN [Concomitant]
     Dosage: ONE DROP TWICE DAILY IN EACH EYE
  10. KEPPRA [Concomitant]
     Dosage: ONE DOSE FORM IN THE MORNING AND ONE DOSE FORM IN THE EVENING.

REACTIONS (2)
  - ALTERED STATE OF CONSCIOUSNESS [None]
  - HYPONATRAEMIA [None]
